FAERS Safety Report 5370827-0 (Version None)
Quarter: 2007Q2

REPORT INFORMATION
  Report Type: 
  Country: None (occurrence: None)
  Receive Date: 20070618
  Receipt Date: 20061219
  Transmission Date: 20071010
  Serious: Yes (Other)
  Sender: FDA-Public Use
  Company Number: PHEH2006US15217

PATIENT
  Age: 25 Year
  Sex: Female

DRUGS (2)
  1. GLEEVEC [Suspect]
     Indication: CHRONIC MYELOID LEUKAEMIA
     Dosage: 300 MG, QD, ORAL; 400 MG, QD, ORAL
     Route: 048
     Dates: start: 20020101, end: 20020801
  2. GLEEVEC [Suspect]
     Indication: CHRONIC MYELOID LEUKAEMIA
     Dosage: 300 MG, QD, ORAL; 400 MG, QD, ORAL
     Route: 048
     Dates: start: 20020801

REACTIONS (1)
  - CATARACT [None]
